FAERS Safety Report 11457411 (Version 1)
Quarter: 2015Q3

REPORT INFORMATION
  Report Type: Spontaneous
  Country: US (occurrence: None)
  Receive Date: 20150903
  Receipt Date: 20150903
  Transmission Date: 20151125
  Serious: No
  Sender: FDA-Public Use
  Company Number: None

PATIENT
  Age: 57 Year
  Sex: Male
  Weight: 98 kg

DRUGS (2)
  1. DAUNORUBICIN [Suspect]
     Active Substance: DAUNORUBICIN
     Dates: end: 20150816
  2. CYTARABINE. [Suspect]
     Active Substance: CYTARABINE
     Dates: end: 20150820

REACTIONS (12)
  - Febrile neutropenia [None]
  - Toothache [None]
  - Throat tightness [None]
  - Mucosal inflammation [None]
  - Hypotension [None]
  - Cardio-respiratory arrest [None]
  - Bacteraemia [None]
  - Dyspnoea [None]
  - Urticaria [None]
  - Vision blurred [None]
  - Hypoxia [None]
  - Speech disorder [None]

NARRATIVE: CASE EVENT DATE: 20150828
